FAERS Safety Report 9286858 (Version 1)
Quarter: 2013Q2

REPORT INFORMATION
  Report Type: Spontaneous
  Country: US (occurrence: US)
  Receive Date: 20130513
  Receipt Date: 20130513
  Transmission Date: 20140414
  Serious: No
  Sender: FDA-Public Use
  Company Number: US-PFIZER INC-2013145780

PATIENT
  Age: 42 Year
  Sex: Female
  Weight: 54.42 kg

DRUGS (2)
  1. ADVIL [Suspect]
     Indication: PAIN
     Dosage: UNK, AS NEEDED
     Route: 048
     Dates: start: 200803, end: 2013
  2. ADVIL [Suspect]
     Dosage: UNK

REACTIONS (1)
  - Swelling [Recovered/Resolved]
